FAERS Safety Report 5740527-3 (Version None)
Quarter: 2008Q2

REPORT INFORMATION
  Report Type: 
  Country: None (occurrence: None)
  Receive Date: 20080516
  Receipt Date: 20080507
  Transmission Date: 20081010
  Serious: Yes (Hospitalization)
  Sender: FDA-Public Use
  Company Number: ZA-JNJFOC-20080501801

PATIENT
  Sex: Female

DRUGS (3)
  1. TRAMACET [Suspect]
     Indication: PROCEDURAL PAIN
     Route: 065
  2. ALZAM [Concomitant]
  3. CELEBREX [Concomitant]

REACTIONS (4)
  - BRADYCARDIA [None]
  - DIZZINESS [None]
  - HYPOTENSION [None]
  - LOSS OF CONSCIOUSNESS [None]
